FAERS Safety Report 9496754 (Version 1)
Quarter: 2013Q3

REPORT INFORMATION
  Report Type: Spontaneous
  Country: US (occurrence: None)
  Receive Date: 20130903
  Receipt Date: 20130903
  Transmission Date: 20140515
  Serious: Yes (Hospitalization)
  Sender: FDA-Public Use
  Company Number: None

PATIENT
  Age: 79 Year
  Sex: Female
  Weight: 58.97 kg

DRUGS (4)
  1. LEVOTHYROXIN [Suspect]
     Indication: HYPOTHYROIDISM
     Route: 048
  2. SYNTHROID [Concomitant]
  3. MAGNESIUM [Concomitant]
  4. MAXI-ZYME [Concomitant]

REACTIONS (2)
  - Atrial fibrillation [None]
  - Product substitution issue [None]
